FAERS Safety Report 16652342 (Version 1)
Quarter: 2019Q3

REPORT INFORMATION
  Report Type: Report from Study
  Country: US (occurrence: US)
  Receive Date: 20190731
  Receipt Date: 20190731
  Transmission Date: 20191004
  Serious: Yes (Death)
  Sender: FDA-Public Use
  Company Number: US-ACTELION-A-NJ2015-120776

PATIENT
  Age: 91 Year
  Sex: Female

DRUGS (4)
  1. OPSUMIT [Suspect]
     Active Substance: MACITENTAN
     Indication: PULMONARY ARTERIAL HYPERTENSION
     Dosage: 10 MG, QD
     Route: 048
     Dates: start: 20150916
  2. ADCIRCA [Concomitant]
     Active Substance: TADALAFIL
  3. LETAIRIS [Concomitant]
     Active Substance: AMBRISENTAN
  4. COUMADIN [Concomitant]
     Active Substance: WARFARIN SODIUM

REACTIONS (9)
  - Influenza [Recovering/Resolving]
  - Death [Fatal]
  - Nasopharyngitis [Recovering/Resolving]
  - Pruritus [Unknown]
  - Rhinorrhoea [Unknown]
  - Eye pruritus [Unknown]
  - Seasonal allergy [Unknown]
  - Nasal congestion [Unknown]
  - Peripheral swelling [Unknown]

NARRATIVE: CASE EVENT DATE: 201702
